FAERS Safety Report 25099372 (Version 1)
Quarter: 2025Q1

REPORT INFORMATION
  Report Type: Other
  Country: TR (occurrence: TR)
  Receive Date: 20250320
  Receipt Date: 20250320
  Transmission Date: 20250408
  Serious: Yes (Hospitalization, Disabling, Other)
  Sender: BRECKENRIDGE PHARMACEUTICAL, INC.
  Company Number: TR-Breckenridge Pharmaceutical, Inc.-2173301

PATIENT
  Age: 45 Year
  Sex: Female

DRUGS (3)
  1. DULOXETINE [Suspect]
     Active Substance: DULOXETINE
     Indication: Major depression
  2. OLANZAPINE [Suspect]
     Active Substance: OLANZAPINE
  3. MIRTAZAPINE [Concomitant]
     Active Substance: MIRTAZAPINE

REACTIONS (2)
  - Parkinsonism [Recovered/Resolved]
  - Extrapyramidal disorder [Unknown]
